FAERS Safety Report 6557644-0 (Version None)
Quarter: 2010Q1

REPORT INFORMATION
  Report Type: 
  Country: None (occurrence: None)
  Receive Date: 20100129
  Receipt Date: 20100127
  Transmission Date: 20100710
  Serious: Yes (Disabling, Other)
  Sender: FDA-Public Use
  Company Number: CZ-BRISTOL-MYERS SQUIBB COMPANY-14930598

PATIENT
  Age: 57 Year
  Sex: Male

DRUGS (6)
  1. SPRYCEL [Suspect]
     Indication: ACUTE LYMPHOCYTIC LEUKAEMIA
     Route: 048
     Dates: start: 20080613, end: 20100110
  2. ZOVIRAX [Concomitant]
  3. HELICID [Concomitant]
  4. COTRIM [Concomitant]
  5. LOZAP [Concomitant]
  6. HYPNOGEN [Concomitant]

REACTIONS (7)
  - AGGRESSION [None]
  - BRAIN INJURY [None]
  - CONFUSIONAL STATE [None]
  - DEMENTIA [None]
  - DIZZINESS [None]
  - MEMORY IMPAIRMENT [None]
  - MOTOR DYSFUNCTION [None]
